FAERS Safety Report 6803681-8 (Version None)
Quarter: 2010Q2

REPORT INFORMATION
  Report Type: 
  Country: None (occurrence: None)
  Receive Date: 20100628
  Receipt Date: 20100527
  Transmission Date: 20101027
  Serious: No
  Sender: FDA-Public Use
  Company Number: US-BAYER-201024343NA

PATIENT
  Age: 43 Year
  Sex: Male
  Weight: 99 kg

DRUGS (2)
  1. ULTRAVIST 370 [Suspect]
     Indication: ABDOMINAL PAIN UPPER
     Dosage: TOTAL DAILY DOSE: 100 ML  UNIT DOSE: 500 ML
     Route: 042
     Dates: start: 20100527, end: 20100527
  2. PROTONIX [Concomitant]

REACTIONS (2)
  - PRURITUS [None]
  - URTICARIA [None]
